FAERS Safety Report 5035322-7 (Version None)
Quarter: 2006Q2

REPORT INFORMATION
  Report Type: 
  Country: None (occurrence: None)
  Receive Date: 20060622
  Receipt Date: 20060622
  Transmission Date: 20061013
  Serious: Yes (Death, Hospitalization)
  Sender: FDA-Public Use
  Company Number: None

PATIENT
  Age: 79 Year
  Sex: Male

DRUGS (2)
  1. CAMPATH [Suspect]
     Indication: T-CELL LYMPHOMA
     Dosage: 30 MG IV
     Route: 042
  2. CHOP [Suspect]
     Indication: T-CELL LYMPHOMA

REACTIONS (4)
  - CARDIO-RESPIRATORY ARREST [None]
  - NEUTROPENIA [None]
  - PYREXIA [None]
  - SEPSIS [None]
